FAERS Safety Report 15357864 (Version 2)
Quarter: 2018Q3

REPORT INFORMATION
  Report Type: Spontaneous
  Country: GB (occurrence: GB)
  Receive Date: 20180906
  Receipt Date: 20180926
  Transmission Date: 20181010
  Serious: Yes (Hospitalization, Other)
  Sender: FDA-Public Use
  Company Number: PHHY2018GB087739

PATIENT
  Age: 53 Year
  Sex: Female

DRUGS (3)
  1. LEFLUNOMIDE. [Suspect]
     Active Substance: LEFLUNOMIDE
     Indication: PRODUCT USED FOR UNKNOWN INDICATION
     Dosage: UNK
     Route: 065
  2. HUMIRA [Suspect]
     Active Substance: ADALIMUMAB
     Indication: RHEUMATOID ARTHRITIS
     Dosage: 40 MG, Q2W
     Route: 058
  3. METHOTREXATE. [Suspect]
     Active Substance: METHOTREXATE
     Indication: PRODUCT USED FOR UNKNOWN INDICATION
     Dosage: UNK
     Route: 065

REACTIONS (10)
  - Asthma [Unknown]
  - Hypersensitivity [Unknown]
  - Angina pectoris [Unknown]
  - Nephrolithiasis [Unknown]
  - Septic shock [Unknown]
  - Infection [Not Recovered/Not Resolved]
  - Sepsis syndrome [Unknown]
  - Drug intolerance [Unknown]
  - Quality of life decreased [Unknown]
  - Asthenia [Not Recovered/Not Resolved]
